FAERS Safety Report 24525244 (Version 3)
Quarter: 2024Q4

REPORT INFORMATION
  Report Type: Spontaneous
  Country: US (occurrence: US)
  Receive Date: 20241019
  Receipt Date: 20241227
  Transmission Date: 20250115
  Serious: Yes (Other)
  Sender: SANOFI AVENTIS
  Company Number: US-SA-2024SA300923

PATIENT
  Sex: Female
  Weight: 67.029 kg

DRUGS (2)
  1. DUPILUMAB [Suspect]
     Active Substance: DUPILUMAB
     Indication: Ill-defined disorder
     Dosage: 300 MG, QOW
     Route: 058
  2. EBGLYSS [Concomitant]
     Active Substance: LEBRIKIZUMAB-LBKZ
     Dosage: TWO SHOTS

REACTIONS (9)
  - Chest injury [Not Recovered/Not Resolved]
  - Dyspnoea [Not Recovered/Not Resolved]
  - Eczema [Unknown]
  - Musculoskeletal stiffness [Unknown]
  - Erythema [Unknown]
  - Asthenia [Unknown]
  - Skin exfoliation [Recovered/Resolved]
  - Rash [Unknown]
  - Therapeutic response decreased [Unknown]
